FAERS Safety Report 23784339 (Version 1)
Quarter: 2024Q2

REPORT INFORMATION
  Report Type: Spontaneous
  Country: US (occurrence: US)
  Receive Date: 20240425
  Receipt Date: 20240425
  Transmission Date: 20240716
  Serious: No
  Sender: FDA-Public Use
  Company Number: US-SA-SAC20240423000516

PATIENT
  Age: 58 Year
  Sex: Male
  Weight: 91.89 kg

DRUGS (1)
  1. DUPIXENT [Suspect]
     Active Substance: DUPILUMAB
     Indication: Asthma
     Dosage: 300 MG, QOW
     Route: 058

REACTIONS (6)
  - Paraesthesia [Unknown]
  - Memory impairment [Unknown]
  - Injection site warmth [Unknown]
  - Injection site inflammation [Unknown]
  - Injection site swelling [Unknown]
  - Asthma [Unknown]

NARRATIVE: CASE EVENT DATE: 20240401
